FAERS Safety Report 17648634 (Version 4)
Quarter: 2020Q3

REPORT INFORMATION
  Report Type: Report from Study
  Country: US (occurrence: US)
  Receive Date: 20200409
  Receipt Date: 20200728
  Transmission Date: 20201102
  Serious: Yes (Other)
  Sender: FDA-Public Use
  Company Number: NVSC2020US095650

PATIENT
  Sex: Female

DRUGS (1)
  1. GILENYA [Suspect]
     Active Substance: FINGOLIMOD HYDROCHLORIDE
     Indication: MULTIPLE SCLEROSIS
     Dosage: 0.5 MG, QD
     Route: 048
     Dates: start: 20200103

REACTIONS (9)
  - Skin tightness [Unknown]
  - Urinary retention [Unknown]
  - Erythema [Unknown]
  - Rash macular [Unknown]
  - Back pain [Unknown]
  - Headache [Unknown]
  - Urinary tract infection [Unknown]
  - Migraine [Unknown]
  - Limb discomfort [Unknown]
